FAERS Safety Report 13592697 (Version 1)
Quarter: 2017Q2

REPORT INFORMATION
  Report Type: Report from Study
  Country: US (occurrence: US)
  Receive Date: 20170530
  Receipt Date: 20170530
  Transmission Date: 20170830
  Serious: Yes (Other)
  Sender: FDA-Public Use
  Company Number: US-JNJFOC-20170527310

PATIENT
  Age: 52 Year
  Sex: Female

DRUGS (2)
  1. PREDNISONE. [Concomitant]
     Active Substance: PREDNISONE
     Route: 065
  2. INFLIXIMAB, RECOMBINANT [Suspect]
     Active Substance: INFLIXIMAB
     Indication: TAKAYASU^S ARTERITIS
     Dosage: RANE (4-10 MG/KG) ADMINISTERED AT A MEDIAN INTERVAL OF 6 WEEKLY (RANGE 4-8 WEEKLY)
     Route: 042

REACTIONS (3)
  - Breast cancer [Unknown]
  - Product use in unapproved indication [Unknown]
  - Off label use [Unknown]
